FAERS Safety Report 19853437 (Version 1)
Quarter: 2021Q3

REPORT INFORMATION
  Report Type: Report from Study
  Country: US (occurrence: US)
  Receive Date: 20210919
  Receipt Date: 20210919
  Transmission Date: 20211014
  Serious: Yes (Death)
  Sender: FDA-Public Use
  Company Number: NVSC2021US212018

PATIENT
  Age: 92 Year
  Sex: Male

DRUGS (1)
  1. ENTRESTO [Suspect]
     Active Substance: SACUBITRIL\VALSARTAN
     Indication: PRODUCT USED FOR UNKNOWN INDICATION
     Dosage: 49.51 MG, (49/51 MG:SACUBITRIL 48.6MG, VALSARTAN 51.4MG)), BID
     Route: 048
     Dates: start: 20180306

REACTIONS (1)
  - Death [Fatal]

NARRATIVE: CASE EVENT DATE: 20190522
